FAERS Safety Report 10171938 (Version 1)
Quarter: 2014Q2

REPORT INFORMATION
  Report Type: Spontaneous
  Country: FR (occurrence: FR)
  Receive Date: 20140515
  Receipt Date: 20140515
  Transmission Date: 20141212
  Serious: Yes (Hospitalization, Other)
  Sender: FDA-Public Use
  Company Number: FR-PFIZER INC-2014126248

PATIENT
  Age: 90 Year
  Sex: Male
  Weight: 77 kg

DRUGS (9)
  1. TAHOR [Suspect]
     Dosage: 80 MG, DAILY
     Route: 048
     Dates: end: 20140320
  2. TARDYFERON [Suspect]
     Dosage: UNK
     Route: 048
     Dates: end: 20140320
  3. INEXIUM [Suspect]
     Dosage: 40 MG, DAILY
     Route: 048
  4. KARDEGIC [Concomitant]
  5. PLAVIX [Concomitant]
  6. FUROSEMIDE [Concomitant]
  7. COVERSYL [Concomitant]
  8. DOLIPRANE [Concomitant]
  9. CHIBRO-PROSCAR [Concomitant]

REACTIONS (7)
  - Hepatitis [Recovering/Resolving]
  - Cholestasis [Recovering/Resolving]
  - Hepatocellular injury [Recovering/Resolving]
  - Renal failure [Unknown]
  - Blood culture positive [Unknown]
  - Cardiac failure [Unknown]
  - Lung consolidation [Unknown]
